FAERS Safety Report 6823972-4 (Version None)
Quarter: 2010Q3

REPORT INFORMATION
  Report Type: 
  Country: None (occurrence: None)
  Receive Date: 20100708
  Receipt Date: 20060927
  Transmission Date: 20110219
  Serious: No
  Sender: FDA-Public Use
  Company Number: US-PFIZER INC-2006118377

PATIENT
  Sex: Female
  Weight: 57.61 kg

DRUGS (17)
  1. CHANTIX [Suspect]
     Indication: SMOKING CESSATION THERAPY
     Dates: start: 20060901, end: 20060926
  2. EFFEXOR XR [Concomitant]
  3. WELLBUTRIN XL [Concomitant]
  4. NEXIUM [Concomitant]
  5. SPIRIVA [Concomitant]
  6. MOBIC [Concomitant]
  7. ZANAFLEX [Concomitant]
  8. NORVASC [Concomitant]
  9. KLONOPIN [Concomitant]
  10. PERCOCET [Concomitant]
  11. ACEON [Concomitant]
  12. SYNTHROID [Concomitant]
  13. TRICOR [Concomitant]
  14. LIPITOR [Concomitant]
  15. LYRICA [Concomitant]
  16. TRAZODONE [Concomitant]
  17. CLIMARA [Concomitant]

REACTIONS (4)
  - GASTROOESOPHAGEAL REFLUX DISEASE [None]
  - INSOMNIA [None]
  - NAUSEA [None]
  - PAIN [None]
